FAERS Safety Report 11972186 (Version 1)
Quarter: 2016Q1

REPORT INFORMATION
  Report Type: Report from Study
  Country: CA (occurrence: CA)
  Receive Date: 20160128
  Receipt Date: 20160128
  Transmission Date: 20160526
  Serious: Yes (Death)
  Sender: FDA-Public Use
  Company Number: PHHY2014CA093689

PATIENT
  Sex: Female

DRUGS (2)
  1. SANDOSTATIN LAR DEPOT [Suspect]
     Active Substance: OCTREOTIDE ACETATE
     Indication: COLORECTAL CANCER METASTATIC
     Dosage: 20 MG, QMO
     Route: 030
     Dates: start: 20140625
  2. SANDOSTATIN [Suspect]
     Active Substance: OCTREOTIDE ACETATE
     Indication: COLORECTAL CANCER METASTATIC
     Dosage: 10 MCG, BID
     Route: 058
     Dates: start: 20140819

REACTIONS (4)
  - Death [Fatal]
  - Product use issue [Unknown]
  - Arthralgia [Unknown]
  - Nausea [Unknown]
